FAERS Safety Report 7709434-0 (Version None)
Quarter: 2011Q3

REPORT INFORMATION
  Report Type: 
  Country: None (occurrence: None)
  Receive Date: 20110825
  Receipt Date: 20110819
  Transmission Date: 20111222
  Serious: Yes (Other)
  Sender: FDA-Public Use
  Company Number: SE-PFIZER INC-2011184308

PATIENT
  Age: 53 Year
  Sex: Male

DRUGS (6)
  1. ESCITALOPRAM [Concomitant]
     Dosage: UNK
  2. NORVASC [Concomitant]
     Dosage: UNK
  3. SUTENT [Suspect]
     Indication: THYROID CANCER
     Dosage: 37.5 MG, UNK
     Route: 048
     Dates: start: 20110629
  4. LEVOTHYROXINE SODIUM [Concomitant]
     Dosage: UNK
  5. ATACAND [Concomitant]
  6. ETALPHA [Concomitant]
     Dosage: UNK

REACTIONS (6)
  - HEADACHE [None]
  - GASTRIC DISORDER [None]
  - BLOOD PRESSURE INCREASED [None]
  - OROPHARYNGEAL BLISTERING [None]
  - HAEMORRHOIDS [None]
  - FAECES HARD [None]
